FAERS Safety Report 5805199-8 (Version None)
Quarter: 2008Q3

REPORT INFORMATION
  Report Type: 
  Country: None (occurrence: None)
  Receive Date: 20080707
  Receipt Date: 20080702
  Transmission Date: 20090109
  Serious: Yes (Other)
  Sender: FDA-Public Use
  Company Number: CERZ-1000238

PATIENT
  Age: 12 Year
  Sex: Female

DRUGS (4)
  1. CEREZYME [Suspect]
     Indication: GAUCHER'S DISEASE
     Dosage: 60 U/KG, Q2W, INTRAVENOUS
     Route: 042
     Dates: start: 19970918
  2. CEREZYME [Suspect]
  3. SOLU-MEDROL [Concomitant]
  4. BENADRYL [Concomitant]

REACTIONS (5)
  - ABDOMINAL DISCOMFORT [None]
  - INFUSION RELATED REACTION [None]
  - PRURITUS [None]
  - THROAT TIGHTNESS [None]
  - URTICARIA [None]
